FAERS Safety Report 23300719 (Version 3)
Quarter: 2024Q1

REPORT INFORMATION
  Report Type: Spontaneous
  Country: US (occurrence: US)
  Receive Date: 20231215
  Receipt Date: 20240322
  Transmission Date: 20240410
  Serious: No
  Sender: FDA-Public Use
  Company Number: US-AMGEN-USASP2023223774

PATIENT
  Age: 52 Year
  Sex: Male

DRUGS (2)
  1. REPATHA [Suspect]
     Active Substance: EVOLOCUMAB
     Indication: Blood cholesterol increased
     Dosage: 420 MILLIGRAM /3.5 ML, QMO
     Route: 065
  2. REPATHA [Suspect]
     Active Substance: EVOLOCUMAB
     Indication: Cardiac disorder

REACTIONS (4)
  - Drug dose omission by device [Unknown]
  - Wrong technique in product usage process [Unknown]
  - Product administration error [Unknown]
  - Product preparation error [Unknown]

NARRATIVE: CASE EVENT DATE: 20231212
